FAERS Safety Report 9981128 (Version 1)
Quarter: 2014Q1

REPORT INFORMATION
  Report Type: Spontaneous
  Country: US (occurrence: None)
  Receive Date: 20140306
  Receipt Date: 20140306
  Transmission Date: 20141002
  Serious: Yes (Hospitalization)
  Sender: FDA-Public Use
  Company Number: None

PATIENT
  Age: 77 Year
  Sex: Female
  Weight: 62.14 kg

DRUGS (8)
  1. NIASPAN [Suspect]
     Indication: BLOOD CHOLESTEROL
     Dosage: BY MOUTH
     Dates: start: 20140106, end: 20140111
  2. CARVEDILOL [Concomitant]
  3. PRAVASTATIN [Concomitant]
  4. CREAN [Concomitant]
  5. LASARTAN [Concomitant]
  6. FERROUS SULFATE IRON [Concomitant]
  7. VITAMIN E [Concomitant]
  8. SUPER CALCIUM [Concomitant]

REACTIONS (7)
  - Blood pressure increased [None]
  - Dyspnoea [None]
  - Pruritus generalised [None]
  - Vision blurred [None]
  - Dizziness [None]
  - Myocardial infarction [None]
  - Heart rate increased [None]
